FAERS Safety Report 21274148 (Version 1)
Quarter: 2022Q3

REPORT INFORMATION
  Report Type: Spontaneous
  Country: US (occurrence: None)
  Receive Date: 20220830
  Receipt Date: 20220830
  Transmission Date: 20221026
  Serious: No
  Sender: FDA-Public Use
  Company Number: None

PATIENT
  Sex: Male

DRUGS (1)
  1. HUMIRA [Suspect]
     Active Substance: ADALIMUMAB
     Dosage: 7MG DAILY ORAL?
     Route: 048

REACTIONS (5)
  - Abdominal pain [None]
  - Hypoaesthesia [None]
  - Angina pectoris [None]
  - Pain [None]
  - Back pain [None]
